APPROVED DRUG PRODUCT: BUPRENORPHINE
Active Ingredient: BUPRENORPHINE
Strength: 10MCG/HR
Dosage Form/Route: FILM, EXTENDED RELEASE;TRANSDERMAL
Application: A207490 | Product #002 | TE Code: AB
Applicant: STRIDES PHARMA INTERNATIONAL AG
Approved: May 17, 2022 | RLD: No | RS: No | Type: RX